FAERS Safety Report 8215001-5 (Version None)
Quarter: 2012Q1

REPORT INFORMATION
  Report Type: 
  Country: None (occurrence: None)
  Receive Date: 20120316
  Receipt Date: 20120227
  Transmission Date: 20120608
  Serious: No
  Sender: FDA-Public Use
  Company Number: US-BAYER-2012-014551

PATIENT
  Sex: Female

DRUGS (1)
  1. MIRENA [Suspect]
     Indication: CONTRACEPTION
     Dosage: 20 MCG/24HR, CONT
     Route: 015
     Dates: start: 20100714, end: 20110114

REACTIONS (7)
  - ABDOMINAL PAIN LOWER [None]
  - BREAST ENLARGEMENT [None]
  - MENSTRUATION IRREGULAR [None]
  - POST PROCEDURAL DISCOMFORT [None]
  - ABDOMINAL DISTENSION [None]
  - WEIGHT INCREASED [None]
  - BREAST TENDERNESS [None]
